FAERS Safety Report 15393772 (Version 2)
Quarter: 2018Q3

REPORT INFORMATION
  Report Type: Spontaneous
  Country: US (occurrence: US)
  Receive Date: 20180917
  Receipt Date: 20180924
  Transmission Date: 20181010
  Serious: Yes (Other)
  Sender: FDA-Public Use
  Company Number: US-PFIZER INC-2018374727

PATIENT
  Age: 50 Year
  Sex: Male

DRUGS (3)
  1. DEPO?ESTRADIOL [Suspect]
     Active Substance: ESTRADIOL CYPIONATE
     Dosage: 5MG/ML; 2ML INTRAMUSCULAR INJECTION EVERY WEEK
     Route: 030
  2. SPIRONOLACTONE. [Concomitant]
     Active Substance: SPIRONOLACTONE
     Indication: BLOOD TESTOSTERONE DECREASED
     Dosage: 100 MG, 1X/DAY
     Route: 048
     Dates: start: 201709, end: 201807
  3. DEPO?ESTRADIOL [Suspect]
     Active Substance: ESTRADIOL CYPIONATE
     Indication: TRANSGENDER HORMONAL THERAPY
     Dosage: 2 ML, HIS ORIGINAL DOSE WAS 2ML EVERY 2 WEEKS
     Route: 030
     Dates: start: 201709

REACTIONS (4)
  - Limb injury [Unknown]
  - Product use in unapproved indication [Unknown]
  - Loss of personal independence in daily activities [Unknown]
  - Lower limb fracture [Not Recovered/Not Resolved]

NARRATIVE: CASE EVENT DATE: 20180812
